FAERS Safety Report 10522206 (Version 1)
Quarter: 2014Q4

REPORT INFORMATION
  Report Type: Spontaneous
  Country: TR (occurrence: TR)
  Receive Date: 20141016
  Receipt Date: 20141016
  Transmission Date: 20150528
  Serious: Yes (Other)
  Sender: FDA-Public Use
  Company Number: TR-MYLANLABS-2014M1007455

PATIENT

DRUGS (2)
  1. METFORMIN [Suspect]
     Active Substance: METFORMIN HYDROCHLORIDE
     Dosage: 85G
     Route: 048
  2. NATEGLINIDE. [Suspect]
     Active Substance: NATEGLINIDE
     Dosage: 10G
     Route: 065

REACTIONS (2)
  - Lactic acidosis [Unknown]
  - Multi-organ failure [Unknown]
